FAERS Safety Report 15997172 (Version 3)
Quarter: 2019Q2

REPORT INFORMATION
  Report Type: Report from Study
  Country: US (occurrence: US)
  Receive Date: 20190222
  Receipt Date: 20190611
  Transmission Date: 20190711
  Serious: Yes (Hospitalization)
  Sender: FDA-Public Use
  Company Number: US-EISAI MEDICAL RESEARCH-EC-2019-051117

PATIENT
  Age: 66 Year
  Sex: Male

DRUGS (2)
  1. LENVIMA [Suspect]
     Active Substance: LENVATINIB
     Indication: THYROID CANCER
     Route: 048
     Dates: start: 20181206, end: 201902
  2. LENVIMA [Suspect]
     Active Substance: LENVATINIB
     Route: 048
     Dates: start: 20190522

REACTIONS (13)
  - Blood sodium decreased [Recovered/Resolved]
  - Blood glucose decreased [Recovered/Resolved]
  - Thrombocytopenia [Recovered/Resolved]
  - Off label use [Recovered/Resolved]
  - Skin disorder [Not Recovered/Not Resolved]
  - Dehydration [Recovered/Resolved]
  - Bone pain [Recovered/Resolved]
  - Nasal congestion [Not Recovered/Not Resolved]
  - Decreased appetite [Not Recovered/Not Resolved]
  - Blood albumin increased [Not Recovered/Not Resolved]
  - Blood creatinine increased [Not Recovered/Not Resolved]
  - Pharyngeal swelling [Recovered/Resolved]
  - Oropharyngeal pain [Recovered/Resolved]

NARRATIVE: CASE EVENT DATE: 201812
